FAERS Safety Report 22046326 (Version 1)
Quarter: 2023Q1

REPORT INFORMATION
  Report Type: Report from Study
  Country: US (occurrence: US)
  Receive Date: 20230228
  Receipt Date: 20230228
  Transmission Date: 20230418
  Serious: Yes (Hospitalization)
  Sender: FDA-Public Use
  Company Number: US-LUNDBECK-DKLU3057347

PATIENT
  Age: 65 Year
  Sex: Female
  Weight: 132.72 kg

DRUGS (1)
  1. VYEPTI [Suspect]
     Active Substance: EPTINEZUMAB-JJMR
     Indication: Migraine
     Route: 041
     Dates: start: 20230110

REACTIONS (2)
  - Mobility decreased [Unknown]
  - Contusion [Unknown]

NARRATIVE: CASE EVENT DATE: 20230110
